FAERS Safety Report 15483072 (Version 1)
Quarter: 2018Q4

REPORT INFORMATION
  Report Type: Spontaneous
  Country: US (occurrence: US)
  Receive Date: 20181003
  Receipt Date: 20181003
  Transmission Date: 20190205
  Serious: Yes (Life-Threatening)
  Sender: FDA-Public Use
  Company Number: None

PATIENT
  Age: 25 Year
  Sex: Male
  Weight: 63.5 kg

DRUGS (1)
  1. PIPERACILLIN AND TAZOBACTAM [Suspect]
     Active Substance: PIPERACILLIN SODIUM\TAZOBACTAM SODIUM
     Indication: SEPSIS
     Dosage: ?          OTHER FREQUENCY:ONCE, BUT STOPPED;?
     Route: 041
     Dates: start: 20180927, end: 20180927

REACTIONS (3)
  - Rash erythematous [None]
  - Tonic convulsion [None]
  - Anaphylactic reaction [None]

NARRATIVE: CASE EVENT DATE: 20180927
